FAERS Safety Report 25766276 (Version 2)
Quarter: 2025Q3

REPORT INFORMATION
  Report Type: Spontaneous
  Country: EU (occurrence: EU)
  Receive Date: 20250905
  Receipt Date: 20250924
  Transmission Date: 20251021
  Serious: Yes (Other)
  Sender: LEO PHARM
  Company Number: EU-LEO Pharma-380677

PATIENT
  Age: 65 Year
  Sex: Male

DRUGS (2)
  1. ANZUPGO [Suspect]
     Active Substance: DELGOCITINIB
     Indication: Dermatitis contact
     Dosage: APPLICATION SITE: BOTH HANDS, APPLIED TWICE DAILY (MORNING AND EVENING)
     Route: 003
     Dates: start: 20250604
  2. ANZUPGO [Suspect]
     Active Substance: DELGOCITINIB
     Indication: Dermatitis contact
     Dosage: APPLICATION SITE: BOTH HANDS, APPLIED TWICE DAILY (MORNING AND EVENING)
     Route: 003
     Dates: start: 20250604

REACTIONS (2)
  - Dermatitis contact [Recovering/Resolving]
  - Neoplasm malignant [Unknown]

NARRATIVE: CASE EVENT DATE: 20250604
